FAERS Safety Report 11188659 (Version 4)
Quarter: 2015Q4

REPORT INFORMATION
  Report Type: Report from Study
  Country: CA (occurrence: CA)
  Receive Date: 20150615
  Receipt Date: 20151210
  Transmission Date: 20160304
  Serious: Yes (Hospitalization, Other)
  Sender: FDA-Public Use
  Company Number: CA-ROCHE-1557368

PATIENT
  Age: 63 Year
  Sex: Female

DRUGS (6)
  1. ACTEMRA [Suspect]
     Active Substance: TOCILIZUMAB
     Indication: RHEUMATOID ARTHRITIS
     Route: 058
     Dates: start: 20150325
  2. ACTEMRA [Suspect]
     Active Substance: TOCILIZUMAB
     Route: 058
     Dates: start: 20150629
  3. ATIVAN [Concomitant]
     Active Substance: LORAZEPAM
  4. PREDNISONE. [Concomitant]
     Active Substance: PREDNISONE
  5. AMLODIPINE [Concomitant]
     Active Substance: AMLODIPINE BESYLATE
  6. PANTOLOC [Concomitant]
     Active Substance: PANTOPRAZOLE SODIUM

REACTIONS (5)
  - Medication error [Unknown]
  - No therapeutic response [Unknown]
  - Bronchopleural fistula [Not Recovered/Not Resolved]
  - Pyrexia [Unknown]
  - Dyspnoea [Unknown]

NARRATIVE: CASE EVENT DATE: 20150325
